FAERS Safety Report 21731621 (Version 2)
Quarter: 2023Q1

REPORT INFORMATION
  Report Type: Report from Study
  Country: US (occurrence: US)
  Receive Date: 20221215
  Receipt Date: 20230317
  Transmission Date: 20230418
  Serious: No
  Sender: FDA-Public Use
  Company Number: US-ABBVIE-4191865

PATIENT
  Age: 65 Year
  Sex: Female

DRUGS (1)
  1. RINVOQ [Suspect]
     Active Substance: UPADACITINIB
     Indication: Colitis ulcerative
     Route: 048
     Dates: start: 20220615

REACTIONS (4)
  - Breast mass [Not Recovered/Not Resolved]
  - Nasopharyngitis [Unknown]
  - Bronchitis [Unknown]
  - Stomatitis [Unknown]

NARRATIVE: CASE EVENT DATE: 20221013
